FAERS Safety Report 15720231 (Version 2)
Quarter: 2018Q4

REPORT INFORMATION
  Report Type: Report from Study
  Country: BR (occurrence: BR)
  Receive Date: 20181213
  Receipt Date: 20181219
  Transmission Date: 20190205
  Serious: Yes (Other)
  Sender: FDA-Public Use
  Company Number: PHHY2018BR182227

PATIENT
  Age: 72 Year
  Sex: Female
  Weight: 67 kg

DRUGS (1)
  1. ACLASTA [Suspect]
     Active Substance: ZOLEDRONIC ACID
     Indication: OSTEOPOROSIS
     Dosage: 1 DF, Q12MO (5MG/100ML)
     Route: 042
     Dates: start: 20171113

REACTIONS (10)
  - Product quality issue [Unknown]
  - Incorrect dose administered [Not Recovered/Not Resolved]
  - Device issue [Unknown]
  - Poor venous access [Unknown]
  - Injection site oedema [Unknown]
  - Injection site bruising [Recovering/Resolving]
  - Nervousness [Unknown]
  - Vein rupture [Unknown]
  - Depression [Unknown]
  - Injection site injury [Unknown]

NARRATIVE: CASE EVENT DATE: 201711
